FAERS Safety Report 12823349 (Version 1)
Quarter: 2016Q4

REPORT INFORMATION
  Report Type: Spontaneous
  Country: US (occurrence: US)
  Receive Date: 20161006
  Receipt Date: 20161006
  Transmission Date: 20170207
  Serious: No
  Sender: FDA-Public Use
  Company Number: None

PATIENT
  Age: 64 Year
  Sex: Female

DRUGS (14)
  1. SPIRONOLACTONE. [Concomitant]
     Active Substance: SPIRONOLACTONE
  2. ASA [Concomitant]
     Active Substance: ASPIRIN
  3. CALCIUM CARBONATE. [Concomitant]
     Active Substance: CALCIUM CARBONATE
  4. CARVEDILOL. [Concomitant]
     Active Substance: CARVEDILOL
  5. FLAX SEED [Concomitant]
     Active Substance: FLAX SEED
  6. REPATHA [Suspect]
     Active Substance: EVOLOCUMAB
     Indication: HYPERLIPIDAEMIA
     Dosage: ?          QUANTITY:1 INJECTION(S);OTHER FREQUENCY:Q 15 DAYS;?
     Route: 058
  7. ZINC [Concomitant]
     Active Substance: ZINC\ZINC CHLORIDE
  8. BRILINTA [Concomitant]
     Active Substance: TICAGRELOR
  9. VITAMIN B COMPLEX [Concomitant]
     Active Substance: CYANOCOBALAMIN\DEXPANTHENOL\NIACINAMIDE\PYRIDOXINE HYDROCHLORIDE\RIBOFLAVIN 5^-PHOSPHATE SODIUM\THIAMINE HYDROCHLORIDE\VITAMIN B COMPLEX
  10. VITAMIN D [Concomitant]
     Active Substance: CHOLECALCIFEROL
  11. LISINOPRIL. [Concomitant]
     Active Substance: LISINOPRIL
  12. RANITIDINE. [Concomitant]
     Active Substance: RANITIDINE
  13. WELCHOL [Concomitant]
     Active Substance: COLESEVELAM HYDROCHLORIDE
  14. FISH OIL [Concomitant]
     Active Substance: FISH OIL

REACTIONS (5)
  - Angina pectoris [None]
  - Cardiac flutter [None]
  - Feeling abnormal [None]
  - Dizziness [None]
  - Lethargy [None]

NARRATIVE: CASE EVENT DATE: 20160914
